FAERS Safety Report 12119403 (Version 1)
Quarter: 2016Q1

REPORT INFORMATION
  Report Type: Spontaneous
  Country: US (occurrence: US)
  Receive Date: 20160226
  Receipt Date: 20160226
  Transmission Date: 20160526
  Serious: Yes (Hospitalization, Other)
  Sender: FDA-Public Use
  Company Number: US-SA-2016SA012972

PATIENT
  Sex: Male

DRUGS (4)
  1. LIDOCAINE. [Concomitant]
     Active Substance: LIDOCAINE
     Dosage: PATCH
  2. ICY HOT VANISHING SCENT [Suspect]
     Active Substance: MENTHOL
     Route: 065
  3. VOLTAREN [Concomitant]
     Active Substance: DICLOFENAC SODIUM
     Indication: ARTHRITIS
  4. BIOFREEZE GEL [Concomitant]

REACTIONS (7)
  - Respiratory disorder [Unknown]
  - Intervertebral disc protrusion [Unknown]
  - Fall [Unknown]
  - Limb discomfort [Unknown]
  - Lumbar vertebral fracture [Unknown]
  - Malaise [Unknown]
  - Diarrhoea [Unknown]
